FAERS Safety Report 9099995 (Version 5)
Quarter: 2014Q3

REPORT INFORMATION
  Report Type: Spontaneous
  Country: US (occurrence: US)
  Receive Date: 20130215
  Receipt Date: 20140828
  Transmission Date: 20150326
  Serious: Yes (Hospitalization, Other)
  Sender: FDA-Public Use
  Company Number: US-009507513-1302USA006640

PATIENT
  Sex: Female
  Weight: 92.97 kg

DRUGS (1)
  1. NUVARING [Suspect]
     Active Substance: ETHINYL ESTRADIOL\ETONOGESTREL
     Indication: CONTRACEPTION
     Dosage: UNK
     Route: 067
     Dates: start: 200806, end: 20090226

REACTIONS (11)
  - Antiphospholipid antibodies [Unknown]
  - Pulmonary embolism [Recovering/Resolving]
  - Mitral valve incompetence [Unknown]
  - Tricuspid valve incompetence [Unknown]
  - Splenomegaly [Unknown]
  - Pneumonia [Recovering/Resolving]
  - Gallbladder disorder [Unknown]
  - Sinus tachycardia [Recovering/Resolving]
  - Bronchial hyperreactivity [Recovering/Resolving]
  - Maternal exposure before pregnancy [Unknown]
  - Breast mass [Unknown]

NARRATIVE: CASE EVENT DATE: 200902
